FAERS Safety Report 22359586 (Version 3)
Quarter: 2023Q2

REPORT INFORMATION
  Report Type: Spontaneous
  Country: CA (occurrence: CA)
  Receive Date: 20230524
  Receipt Date: 20230616
  Transmission Date: 20230722
  Serious: Yes (Hospitalization)
  Sender: FDA-Public Use
  Company Number: CA-JNJFOC-20230545160

PATIENT
  Age: 47 Year
  Sex: Female

DRUGS (16)
  1. SIMPONI [Suspect]
     Active Substance: GOLIMUMAB
     Indication: Product used for unknown indication
     Route: 058
  2. REMICADE [Suspect]
     Active Substance: INFLIXIMAB
     Indication: Product used for unknown indication
     Route: 065
  3. HYDROXYCHLOROQUINE [Suspect]
     Active Substance: HYDROXYCHLOROQUINE
     Indication: Product used for unknown indication
     Route: 065
  4. LEFLUNOMIDE [Suspect]
     Active Substance: LEFLUNOMIDE
     Indication: Product used for unknown indication
     Route: 065
  5. METHOTREXATE SODIUM [Suspect]
     Active Substance: METHOTREXATE SODIUM
     Indication: Product used for unknown indication
     Route: 065
  6. ORENCIA [Suspect]
     Active Substance: ABATACEPT
     Indication: Product used for unknown indication
     Route: 065
  7. RITUXIMAB [Suspect]
     Active Substance: RITUXIMAB
     Indication: Rheumatoid arthritis
     Route: 042
  8. ACETAMINOPHEN [Concomitant]
     Active Substance: ACETAMINOPHEN
     Indication: Premedication
     Route: 048
  9. ARAVA [Concomitant]
     Active Substance: LEFLUNOMIDE
  10. DIPHENHYDRAMINE [Concomitant]
     Active Substance: DIPHENHYDRAMINE
     Indication: Premedication
     Route: 048
  11. CHOLECALCIFEROL [Concomitant]
     Active Substance: CHOLECALCIFEROL
  12. METHYLPREDNISOLONE [Concomitant]
     Active Substance: METHYLPREDNISOLONE
     Indication: Premedication
     Route: 042
  13. METHYLPREDNISOLONE SODIUM SUCCINATE [Concomitant]
     Active Substance: METHYLPREDNISOLONE SODIUM SUCCINATE
     Indication: Premedication
     Route: 048
  14. RISEDRONATE SODIUM [Concomitant]
     Active Substance: RISEDRONATE SODIUM
  15. OXYCODONE HYDROCHLORIDE [Concomitant]
     Active Substance: OXYCODONE HYDROCHLORIDE
  16. TYLENOL [Concomitant]
     Active Substance: ACETAMINOPHEN
     Indication: Premedication
     Route: 048

REACTIONS (15)
  - Blood pressure diastolic abnormal [Recovered/Resolved]
  - Blood pressure diastolic decreased [Recovered/Resolved]
  - Drug intolerance [Recovered/Resolved]
  - Joint stiffness [Recovered/Resolved]
  - Mobility decreased [Recovered/Resolved]
  - Musculoskeletal stiffness [Recovered/Resolved]
  - Oxygen saturation decreased [Recovered/Resolved]
  - Pain [Recovered/Resolved]
  - Red blood cell sedimentation rate increased [Recovered/Resolved]
  - Infusion related reaction [Recovered/Resolved]
  - Nasopharyngitis [Recovered/Resolved]
  - Blood pressure systolic increased [Recovered/Resolved]
  - Rhinitis [Recovered/Resolved]
  - Treatment failure [Recovered/Resolved]
  - Drug ineffective [Recovered/Resolved]
